FAERS Safety Report 5480040-4 (Version None)
Quarter: 2007Q4

REPORT INFORMATION
  Report Type: 
  Country: None (occurrence: None)
  Receive Date: 20071008
  Receipt Date: 20071003
  Transmission Date: 20080405
  Serious: Yes (Other)
  Sender: FDA-Public Use
  Company Number: US-PFIZER INC-2007074151

PATIENT
  Weight: 99.545 kg

DRUGS (8)
  1. VFEND [Suspect]
  2. SOLU-MEDROL [Suspect]
     Indication: TRANSPLANT REJECTION
  3. CARDIZEM [Suspect]
     Indication: ATRIAL FIBRILLATION
  4. PREDNISONE [Suspect]
     Indication: TRANSPLANT REJECTION
  5. ACYCLOVIR [Suspect]
  6. ANTIBIOTICS [Suspect]
  7. CYCLOSPORINE [Concomitant]
  8. ALL OTHER THERAPEUTIC PRODUCTS [Concomitant]

REACTIONS (3)
  - AMNESIA [None]
  - ATRIAL FIBRILLATION [None]
  - CONVULSION [None]
